FAERS Safety Report 5009564-0 (Version None)
Quarter: 2006Q2

REPORT INFORMATION
  Report Type: 
  Country: None (occurrence: None)
  Receive Date: 20060522
  Receipt Date: 20060509
  Transmission Date: 20061013
  Serious: Yes (Hospitalization)
  Sender: FDA-Public Use
  Company Number: 2006062228

PATIENT
  Age: 60 Year
  Sex: Male

DRUGS (1)
  1. EPIRUBICIN [Suspect]
     Indication: BLADDER CANCER
     Dosage: 50 MG

REACTIONS (3)
  - DRUG TOXICITY [None]
  - MYELOFIBROSIS [None]
  - PANCYTOPENIA [None]
